FAERS Safety Report 9655154 (Version 1)
Quarter: 2013Q4

REPORT INFORMATION
  Report Type: Spontaneous
  Country: US (occurrence: US)
  Receive Date: 20131029
  Receipt Date: 20131029
  Transmission Date: 20140711
  Serious: No
  Sender: FDA-Public Use
  Company Number: US-PURDUE-USA-2012-0085885

PATIENT
  Age: 75 Year
  Sex: Female

DRUGS (2)
  1. OXYCONTIN (NDA 22-272) [Suspect]
     Indication: PAIN
     Dosage: 20 MG, Q12H
  2. OXYCODONE HCL IR CAPSULES [Concomitant]
     Indication: PAIN
     Dosage: 50 MG, UNK

REACTIONS (1)
  - Pain [Unknown]
